FAERS Safety Report 11401836 (Version 1)
Quarter: 2015Q3

REPORT INFORMATION
  Report Type: Spontaneous
  Country: US (occurrence: US)
  Receive Date: 20150821
  Receipt Date: 20150821
  Transmission Date: 20151125
  Serious: No
  Sender: FDA-Public Use
  Company Number: US-ROCHE-1377881

PATIENT
  Sex: Female

DRUGS (3)
  1. SOVALDI [Suspect]
     Active Substance: SOFOSBUVIR
     Indication: CHRONIC HEPATITIS C
     Dosage: EXPIRY DATE: /JUN/2015
     Route: 065
     Dates: start: 201402
  2. PEGASYS [Suspect]
     Active Substance: PEGINTERFERON ALFA-2A
     Indication: CHRONIC HEPATITIS C
     Dosage: EVERY FRIDAY, EXPIRY DATE: /DEC/2015.
     Route: 065
     Dates: start: 201402
  3. RIBAVIRIN. [Suspect]
     Active Substance: RIBAVIRIN
     Indication: CHRONIC HEPATITIS C
     Dosage: EXPIRY DATE: MAY/2017.
     Route: 065
     Dates: start: 201402

REACTIONS (11)
  - Diarrhoea [Unknown]
  - Viral infection [Unknown]
  - Oropharyngeal pain [Recovered/Resolved]
  - Vomiting [Unknown]
  - Dyspepsia [Unknown]
  - Cough [Unknown]
  - Secretion discharge [Unknown]
  - Fatigue [Unknown]
  - Retching [Unknown]
  - Chills [Unknown]
  - Hypophagia [Unknown]
